FAERS Safety Report 14726009 (Version 1)
Quarter: 2018Q2

REPORT INFORMATION
  Report Type: Spontaneous
  Country: GB (occurrence: GB)
  Receive Date: 20180406
  Receipt Date: 20180406
  Transmission Date: 20180711
  Serious: Yes (Other)
  Sender: FDA-Public Use
  Company Number: GB-TEVA-2018-GB-879076

PATIENT
  Age: 73 Year
  Sex: Female
  Weight: 61 kg

DRUGS (19)
  1. PERINDOPRIL TERT-BUTYLAMINE [Concomitant]
     Active Substance: PERINDOPRIL ERBUMINE
     Dosage: 1 DOSAGE FORMS DAILY; EACH MORNING BEFORE FOOD
     Dates: start: 20150702
  2. AMITRIPTYLINE HYDROCHLORIDE. [Concomitant]
     Active Substance: AMITRIPTYLINE HYDROCHLORIDE
     Dosage: 1 DOSAGE FORMS DAILY; AT NIGHT
     Dates: start: 20160304
  3. ACETYLSALICYLIC ACID [Concomitant]
     Active Substance: ASPIRIN
     Dosage: 1 DOSAGE FORMS DAILY;
     Dates: start: 20150408
  4. SIRDUPLA [Concomitant]
     Active Substance: FLUTICASONE PROPIONATE\SALMETEROL XINAFOATE
     Dosage: 4 DOSAGE FORMS DAILY;
     Route: 055
     Dates: start: 20171005
  5. LEVOTHYROXINE. [Concomitant]
     Active Substance: LEVOTHYROXINE
     Dosage: 1 DOSAGE FORMS DAILY;
     Dates: start: 19980731
  6. AMLODIPINE [Concomitant]
     Active Substance: AMLODIPINE BESYLATE
     Dosage: 1 DOSAGE FORMS DAILY;
     Dates: start: 20180116
  7. GLYCERYL TRINITRATE [Concomitant]
     Active Substance: NITROGLYCERIN
     Route: 065
     Dates: start: 20141105
  8. VENTOLIN [Concomitant]
     Active Substance: ALBUTEROL SULFATE
     Dosage: AS DIRECTED
     Route: 065
     Dates: start: 20100609
  9. PARACETAMOL [Concomitant]
     Active Substance: ACETAMINOPHEN
     Dosage: TWO TO BE TAKEN EVERY 4-6 HOURS UP TO FOUR TIME...
     Route: 065
     Dates: start: 20141105
  10. LANSOPRAZOLE. [Concomitant]
     Active Substance: LANSOPRAZOLE
     Dosage: 1 DOSAGE FORMS DAILY; EACH MORNING
     Dates: start: 20150424
  11. CODEINE PHOSPHATE [Concomitant]
     Active Substance: CODEINE PHOSPHATE
     Route: 065
     Dates: start: 20141203
  12. ATORVASTATIN [Concomitant]
     Active Substance: ATORVASTATIN
     Indication: HYPERCHOLESTEROLAEMIA
     Dosage: 1 DOSAGE FORMS DAILY; ONE TO BE TAKEN EACH EVENING. LOWERS CHOLESTEROL.
     Dates: start: 20161201
  13. MACROGOL [Concomitant]
     Active Substance: POLYETHYLENE GLYCOLS
     Dosage: 25MLS DAILY OR TWICE A DAY IN SQUASH
     Route: 065
     Dates: start: 20170124
  14. HYDROXOCOBALAMIN [Concomitant]
     Active Substance: HYDROXOCOBALAMIN
     Route: 030
     Dates: start: 20171222
  15. CLARITHROMYCIN. [Suspect]
     Active Substance: CLARITHROMYCIN
     Route: 065
     Dates: start: 20180206
  16. CALCICHEW D3 [Concomitant]
     Active Substance: CALCIUM\CHOLECALCIFEROL
     Dosage: 2 DOSAGE FORMS DAILY; DRINK PLENTY OF WATER
     Dates: start: 20170725
  17. ALZAIN [Concomitant]
     Dosage: 2 DOSAGE FORMS DAILY;
     Dates: start: 20170607
  18. FENBID [Concomitant]
     Active Substance: IBUPROFEN
     Dosage: 3 DOSAGE FORMS DAILY; APPLY UP TO THREE TIMES A DAY TO AFFECTED AREA ...
     Dates: start: 20170725
  19. COLECALCIFEROL [Concomitant]
     Active Substance: CHOLECALCIFEROL
     Dosage: 1 DOSAGE FORMS DAILY;
     Dates: start: 20170124, end: 20180116

REACTIONS (5)
  - Malaise [Unknown]
  - Hypersensitivity [Recovered/Resolved]
  - Arrhythmia [Recovered/Resolved]
  - Rash pruritic [Unknown]
  - Palpitations [Unknown]

NARRATIVE: CASE EVENT DATE: 20180206
